FAERS Safety Report 9306334 (Version 1)
Quarter: 2012Q4

REPORT INFORMATION
  Report Type: Spontaneous
  Country: DE (occurrence: None)
  Receive Date: 20121218
  Receipt Date: 20121218
  Transmission Date: 20130627
  Serious: Yes (Other)
  Sender: FDA-Public Use
  Company Number: DE-010081

PATIENT
  Age: 40 Year
  Sex: Female

DRUGS (8)
  1. MENOGON [Suspect]
     Indication: ASSISTED FERTILIZATION
     Route: 058
     Dates: start: 20120714, end: 20120718
  2. MENOGON [Suspect]
     Indication: ASSISTED FERTILIZATION
     Route: 058
     Dates: start: 20120718, end: 20120721
  3. MENOGON [Suspect]
     Indication: ASSISTED FERTILIZATION
     Route: 058
     Dates: start: 20120722, end: 20120723
  4. L-THYROXIN [Concomitant]
  5. FOLIC ACID [Concomitant]
  6. METFORMIN [Concomitant]
  7. METRELEF [Concomitant]
  8. CHORIONIC GONADOTROPIN [Concomitant]

REACTIONS (6)
  - Dizziness [None]
  - Nausea [None]
  - Petechiae [None]
  - Ascites [None]
  - Ovarian hyperstimulation syndrome [None]
  - Abdominal distension [None]
